FAERS Safety Report 20081848 (Version 2)
Quarter: 2021Q4

REPORT INFORMATION
  Report Type: Spontaneous
  Country: DE (occurrence: DE)
  Receive Date: 20211117
  Receipt Date: 20211119
  Transmission Date: 20220304
  Serious: Yes (Hospitalization)
  Sender: FDA-Public Use
  Company Number: DE-ADRED-06590-04

PATIENT
  Age: 63 Year
  Sex: Male
  Weight: 95 kg

DRUGS (10)
  1. CARBOPLATIN [Suspect]
     Active Substance: CARBOPLATIN
     Indication: Product used for unknown indication
     Dosage: 311.1 MILLIGRAM, BY REGIMEN, SOLUTION FOR INJECTION/INFUSION
     Route: 042
  2. GEMCITABINE [Suspect]
     Active Substance: GEMCITABINE
     Indication: Product used for unknown indication
     Dosage: 2472 MILLIGRAM
     Route: 042
  3. CALCITRIOL [Concomitant]
     Active Substance: CALCITRIOL
     Dosage: 0.25 MICROGRAM (0.25 ?G, 2-0-0-0, KAPSELN)
     Route: 048
  4. SEMAGLUTIDE [Concomitant]
     Active Substance: SEMAGLUTIDE
     Dosage: 2 MILLIGRAM
     Route: 058
  5. PANTOPRAZOLE [Concomitant]
     Active Substance: PANTOPRAZOLE
     Dosage: 40 MILLIGRAM, QD, 1-0-0-0, RETARD-TABLETTEN
     Route: 048
  6. LOPERAMIDE [Concomitant]
     Active Substance: LOPERAMIDE
     Dosage: 2 MILLIGRAM, 2-2-2-0, KAPSELN
     Route: 048
  7. ASPIRIN [Concomitant]
     Active Substance: ASPIRIN
     Dosage: 100 MILLIGRAM, QD, 1-0-0-0, TABLETTEN
     Route: 048
  8. DALTEPARIN [Concomitant]
     Active Substance: DALTEPARIN
     Dosage: UNK (5000 IE, 0-0-1-0, FERTIGSPRITZEN)
     Route: 058
  9. PREGABALIN [Concomitant]
     Active Substance: PREGABALIN
     Dosage: 150 MILLIGRAM, QD, 0-0-1-0, KAPSELN
     Route: 048
  10. TORSEMIDE [Concomitant]
     Active Substance: TORSEMIDE
     Dosage: 10 MILLIGRAM, 2-0-0-0, TABLETTEN
     Route: 048

REACTIONS (3)
  - Pain [Unknown]
  - Chills [Unknown]
  - Pyrexia [Unknown]
